FAERS Safety Report 15236550 (Version 2)
Quarter: 2018Q3

REPORT INFORMATION
  Report Type: Spontaneous
  Country: BD (occurrence: BD)
  Receive Date: 20180803
  Receipt Date: 20180830
  Transmission Date: 20181010
  Serious: Yes (Other)
  Sender: FDA-Public Use
  Company Number: BD-JNJFOC-20180739336

PATIENT
  Age: 51 Year
  Sex: Male
  Weight: 40 kg

DRUGS (12)
  1. LINEZOLID. [Suspect]
     Active Substance: LINEZOLID
     Indication: TUBERCULOSIS
     Route: 048
     Dates: start: 20180624, end: 20180629
  2. CYCLOSERINE. [Suspect]
     Active Substance: CYCLOSERINE
     Indication: TUBERCULOSIS
     Route: 048
     Dates: start: 20180212
  3. OMEPRAZOLE. [Concomitant]
     Active Substance: OMEPRAZOLE
     Indication: HYPERCHLORHYDRIA
     Route: 048
     Dates: start: 20180212
  4. BEDAQUILINE [Suspect]
     Active Substance: BEDAQUILINE
     Indication: TUBERCULOSIS
     Route: 048
     Dates: start: 20180212, end: 2018
  5. LINEZOLID. [Suspect]
     Active Substance: LINEZOLID
     Indication: TUBERCULOSIS
     Route: 048
     Dates: start: 20180212, end: 20180624
  6. CLOFAZIMINE [Suspect]
     Active Substance: CLOFAZIMINE
     Indication: TUBERCULOSIS
     Route: 048
     Dates: start: 20180212
  7. DISOPAN [Concomitant]
     Indication: SLEEP DISORDER
     Route: 048
     Dates: start: 20180212
  8. BEDAQUILINE [Suspect]
     Active Substance: BEDAQUILINE
     Indication: TUBERCULOSIS
     Route: 048
     Dates: start: 2018
  9. ETHIONAMIDE [Suspect]
     Active Substance: ETHIONAMIDE
     Indication: TUBERCULOSIS
     Route: 048
     Dates: start: 20180212
  10. PYRAZINAMIDE. [Suspect]
     Active Substance: PYRAZINAMIDE
     Indication: TUBERCULOSIS
     Route: 048
     Dates: start: 20180212
  11. MECLIZINE [Concomitant]
     Active Substance: MECLIZINE HYDROCHLORIDE
     Indication: VOMITING
     Route: 048
     Dates: start: 20180212
  12. PYRIDOXINE [Concomitant]
     Active Substance: PYRIDOXINE
     Indication: PROPHYLAXIS
     Route: 048
     Dates: start: 20180212

REACTIONS (1)
  - Anaemia [Recovered/Resolved]

NARRATIVE: CASE EVENT DATE: 20180624
